FAERS Safety Report 4431915-6 (Version None)
Quarter: 2004Q3

REPORT INFORMATION
  Report Type: 
  Country: None (occurrence: None)
  Receive Date: 20040818
  Receipt Date: 20040730
  Transmission Date: 20050211
  Serious: No
  Sender: FDA-Public Use
  Company Number: USA040874155

PATIENT
  Age: 46 Year
  Sex: Male

DRUGS (2)
  1. ZYPREXA [Suspect]
     Indication: DEPRESSION
     Dosage: 20 MG
     Dates: start: 19990101
  2. ALBUTEROL [Concomitant]

REACTIONS (8)
  - ABDOMINAL DISTENSION [None]
  - ABDOMINAL TENDERNESS [None]
  - BLOOD GLUCOSE ABNORMAL [None]
  - DIZZINESS [None]
  - EPISTAXIS [None]
  - GASTRIC DISORDER [None]
  - HYPERHIDROSIS [None]
  - VOMITING [None]
